FAERS Safety Report 6677824-3 (Version None)
Quarter: 2010Q2

REPORT INFORMATION
  Report Type: 
  Country: None (occurrence: None)
  Receive Date: 20100412
  Receipt Date: 20100323
  Transmission Date: 20101027
  Serious: No
  Sender: FDA-Public Use
  Company Number: US-ALEXION-A201000344

PATIENT
  Sex: Male

DRUGS (8)
  1. SOLIRIS [Suspect]
     Indication: PAROXYSMAL NOCTURNAL HAEMOGLOBINURIA
     Dosage: 600 MG, QWK
     Route: 042
     Dates: start: 20080804, end: 20080801
  2. SOLIRIS [Suspect]
     Dosage: 900 MG, Q2WK
     Route: 042
     Dates: start: 20080902
  3. WARFARIN [Concomitant]
     Dosage: 5 MG/2.5 MG ALTERNATE DAYS
     Route: 048
  4. ACYCLOVIR [Concomitant]
     Dosage: 400 MG, BID
     Route: 048
  5. PREDNISOLONE [Concomitant]
     Dosage: 5 MG, QD
     Route: 048
  6. POTASSIUM [Concomitant]
     Dosage: 10 MEQ, BID
     Route: 048
  7. LORAZEPAM [Concomitant]
     Indication: NAUSEA
     Dosage: UNK
     Route: 048
  8. PROCHLORPERAZINE [Concomitant]
     Indication: NAUSEA
     Dosage: UNK
     Route: 048

REACTIONS (1)
  - ABDOMINAL DISCOMFORT [None]
